FAERS Safety Report 14278471 (Version 2)
Quarter: 2017Q4

REPORT INFORMATION
  Report Type: Spontaneous
  Country: ZA (occurrence: ZA)
  Receive Date: 20171212
  Receipt Date: 20171228
  Transmission Date: 20180321
  Serious: Yes (Hospitalization, Other)
  Sender: FDA-Public Use
  Company Number: ZA-MYLANLABS-2017M1076753

PATIENT
  Age: 68 Year
  Sex: Female

DRUGS (6)
  1. ASPAVOR [Suspect]
     Active Substance: ATORVASTATIN
     Indication: BLOOD CHOLESTEROL
     Dosage: 10 MG, UNK
  2. PURICOS [Suspect]
     Active Substance: ALLOPURINOL
     Indication: GOUT
     Dosage: 300 MG, UNK
  3. TRAMAZAC                           /00599201/ [Suspect]
     Active Substance: TRAMADOL
     Indication: PAIN
     Dosage: 50 MG, UNK
  4. ONE ALPHA [Suspect]
     Active Substance: ALFACALCIDOL
     Indication: VITAMIN D DEFICIENCY
     Dosage: 0.25 ?G, UNK
     Route: 048
  5. MYLAN FUROSEMIDE 40 [Suspect]
     Active Substance: FUROSEMIDE
     Indication: DIURETIC THERAPY
     Dosage: 40 MG, UNK
     Route: 048
  6. EUTHYROX [Suspect]
     Active Substance: LEVOTHYROXINE SODIUM
     Indication: THYROID THERAPY
     Dosage: 25 ?G, UNK

REACTIONS (2)
  - Pulmonary embolism [Unknown]
  - Nephrolithiasis [Unknown]
